FAERS Safety Report 5114097-7 (Version None)
Quarter: 2006Q3

REPORT INFORMATION
  Report Type: 
  Country: None (occurrence: None)
  Receive Date: 20060925
  Receipt Date: 20060825
  Transmission Date: 20061208
  Serious: Yes (Hospitalization)
  Sender: FDA-Public Use
  Company Number: JP-JPN-A200603354

PATIENT
  Age: 80 Year
  Sex: Female
  Weight: 53 kg

DRUGS (5)
  1. VALTREX [Suspect]
     Indication: HERPES ZOSTER
     Dosage: 1000MG TWICE PER DAY
     Route: 048
     Dates: start: 20060814, end: 20060819
  2. LOXONIN [Suspect]
     Indication: PAIN
     Dosage: 60MG THREE TIMES PER DAY
     Route: 065
     Dates: start: 20060814, end: 20060816
  3. AM [Concomitant]
     Indication: HERPES ZOSTER
     Dosage: 3.9G PER DAY
     Route: 048
     Dates: start: 20060814, end: 20060819
  4. CEFZON [Concomitant]
     Indication: HERPES ZOSTER
     Dosage: 200MG PER DAY
     Route: 048
     Dates: start: 20060814, end: 20060818
  5. CALBLOCK [Concomitant]
     Indication: HYPERTENSION
     Dosage: 16MG PER DAY
     Route: 048
     Dates: start: 20041201

REACTIONS (8)
  - BLOOD CREATININE INCREASED [None]
  - BLOOD UREA INCREASED [None]
  - DEHYDRATION [None]
  - ENCEPHALOPATHY [None]
  - NAUSEA [None]
  - RENAL IMPAIRMENT [None]
  - VOMITING [None]
  - YAWNING [None]
